FAERS Safety Report 19523233 (Version 3)
Quarter: 2022Q4

REPORT INFORMATION
  Report Type: Report from Study
  Country: MX (occurrence: MX)
  Receive Date: 20210712
  Receipt Date: 20221221
  Transmission Date: 20230113
  Serious: Yes (Death, Other)
  Sender: FDA-Public Use
  Company Number: MX-002147023-NVSC2021MX150800

PATIENT

DRUGS (2)
  1. RUXOLITINIB [Suspect]
     Active Substance: RUXOLITINIB
     Indication: Myelofibrosis
     Dosage: 1 DOSAGE FORM, BID
     Route: 048
     Dates: start: 2010, end: 2013
  2. RUXOLITINIB [Suspect]
     Active Substance: RUXOLITINIB
     Dosage: 1 DOSAGE FORM, BID
     Route: 048
     Dates: start: 2013

REACTIONS (16)
  - Accident [Unknown]
  - Neoplasm malignant [Fatal]
  - Condition aggravated [Unknown]
  - Depression [Unknown]
  - Pain in extremity [Not Recovered/Not Resolved]
  - Foot deformity [Not Recovered/Not Resolved]
  - Memory impairment [Unknown]
  - Hypertension [Unknown]
  - Renal failure [Fatal]
  - Decreased appetite [Unknown]
  - Malaise [Unknown]
  - Gait disturbance [Unknown]
  - Metastasis [Fatal]
  - Tension [Recovering/Resolving]
  - Skin disorder [Recovering/Resolving]
  - Weight decreased [Unknown]

NARRATIVE: CASE EVENT DATE: 20210101
